FAERS Safety Report 12616432 (Version 1)
Quarter: 2016Q3

REPORT INFORMATION
  Report Type: Spontaneous
  Country: CN (occurrence: CN)
  Receive Date: 20160802
  Receipt Date: 20160802
  Transmission Date: 20161109
  Serious: Yes (Hospitalization, Other)
  Sender: FDA-Public Use
  Company Number: CN-ELI_LILLY_AND_COMPANY-CN201607008892

PATIENT
  Age: 72 Year
  Sex: Male
  Weight: 62.5 kg

DRUGS (5)
  1. HUMULIN R [Suspect]
     Active Substance: INSULIN HUMAN
     Indication: DIABETES MELLITUS
     Dosage: 16 U, QD
     Route: 058
     Dates: start: 2012, end: 2013
  2. ONGLYZA [Concomitant]
     Active Substance: SAXAGLIPTIN HYDROCHLORIDE
     Dosage: UNK
  3. HUMALOG [Suspect]
     Active Substance: INSULIN LISPRO
     Dosage: 8 U, QD
     Route: 058
     Dates: start: 2013
  4. HUMULIN R [Suspect]
     Active Substance: INSULIN HUMAN
     Dosage: 8 U, QD
     Route: 058
     Dates: start: 2012, end: 2013
  5. HUMALOG [Suspect]
     Active Substance: INSULIN LISPRO
     Indication: DIABETES MELLITUS
     Dosage: 24 U, QD
     Route: 058
     Dates: start: 2013

REACTIONS (11)
  - Blindness unilateral [Unknown]
  - Visual acuity reduced [Unknown]
  - Blood glucose increased [Unknown]
  - Blood glucose increased [Unknown]
  - Drug dose omission [Unknown]
  - Cataract [Unknown]
  - Blood glucose decreased [Unknown]
  - Memory impairment [Unknown]
  - Retinal haemorrhage [Unknown]
  - Diabetic complication [Unknown]
  - Diabetic vascular disorder [Unknown]

NARRATIVE: CASE EVENT DATE: 2012
